FAERS Safety Report 5436953-2 (Version None)
Quarter: 2007Q3

REPORT INFORMATION
  Report Type: 
  Country: None (occurrence: None)
  Receive Date: 20070831
  Receipt Date: 20070822
  Transmission Date: 20080115
  Serious: Yes (Hospitalization)
  Sender: FDA-Public Use
  Company Number: AU-PURDUE-USA_2007_0028890

PATIENT
  Age: 47 Year
  Sex: Male

DRUGS (10)
  1. MORPHINE SULFATE [Suspect]
     Indication: DRUG USE FOR UNKNOWN INDICATION
     Dosage: 10 MG, UNK
     Dates: start: 20070530
  2. TRAMADOL HCL [Suspect]
     Indication: DRUG USE FOR UNKNOWN INDICATION
     Dosage: 200 MG, UNK
     Route: 048
     Dates: start: 20070530
  3. ROCURONIUM BROMIDE [Suspect]
     Indication: HERNIA
     Dosage: 50 MG, UNK
     Route: 042
     Dates: start: 20070530
  4. FENTANYL [Suspect]
     Indication: HERNIA
     Dosage: 100 MG, UNK
     Route: 062
     Dates: start: 20070530
  5. PARECOXIB SODIUM [Suspect]
     Indication: DRUG USE FOR UNKNOWN INDICATION
     Dosage: 40 MG, UNK
     Route: 048
     Dates: start: 20070530
  6. TICARCILLIN DISODIUM/CLAVULANATE POTASSIUM [Suspect]
     Indication: DRUG USE FOR UNKNOWN INDICATION
     Dosage: 3.1 MG, UNK
     Route: 042
     Dates: start: 20070530
  7. PERINDOPRIL ERBUMINE [Concomitant]
  8. INDAPAMIDE [Concomitant]
  9. PANTOPRAZOLE SODIUM [Concomitant]
  10. XENICAL [Concomitant]

REACTIONS (3)
  - DYSPHONIA [None]
  - DYSPNOEA [None]
  - SWELLING [None]
